FAERS Safety Report 9877279 (Version 1)
Quarter: 2014Q1

REPORT INFORMATION
  Report Type: Spontaneous
  Country: GB (occurrence: GB)
  Receive Date: 20140206
  Receipt Date: 20140206
  Transmission Date: 20141002
  Serious: Yes (Other)
  Sender: FDA-Public Use
  Company Number: GB-ASTELLAS-2014EU000709

PATIENT
  Age: 66 Year
  Sex: Female
  Weight: 60 kg

DRUGS (8)
  1. BETMIGA [Suspect]
     Indication: HYPERTONIC BLADDER
     Dosage: 50 MG, UNKNOWN/D
     Route: 048
     Dates: start: 20130901, end: 20140104
  2. LITHIUM [Concomitant]
     Dosage: UNK
     Route: 065
  3. RASAGILINE [Concomitant]
     Dosage: UNK
     Route: 065
  4. MADOPAR [Concomitant]
     Dosage: UNK
     Route: 065
  5. FOLIC ACID [Concomitant]
     Dosage: UNK
     Route: 065
  6. BEZALIP [Concomitant]
     Dosage: UNK
     Route: 065
  7. SIMVASTATIN [Concomitant]
     Dosage: UNK
     Route: 065
  8. OMEPRAZOLE [Concomitant]
     Dosage: UNK
     Route: 065

REACTIONS (1)
  - Renal impairment [Recovering/Resolving]
